FAERS Safety Report 17050414 (Version 2)
Quarter: 2019Q4

REPORT INFORMATION
  Report Type: Report from Study
  Country: CA (occurrence: CA)
  Receive Date: 20191119
  Receipt Date: 20191227
  Transmission Date: 20200122
  Serious: Yes (Hospitalization)
  Sender: FDA-Public Use
  Company Number: CA-BEH-2019109588

PATIENT
  Sex: Male

DRUGS (1)
  1. HIZENTRA [Suspect]
     Active Substance: HUMAN IMMUNOGLOBULIN G
     Indication: CARDIAC AMYLOIDOSIS
     Dosage: 10 GRAM, QW
     Route: 058
     Dates: start: 20190117

REACTIONS (7)
  - No adverse event [Unknown]
  - Asthenia [Recovering/Resolving]
  - Pneumocystis jirovecii pneumonia [Recovering/Resolving]
  - Respiratory distress [Recovering/Resolving]
  - Product dose omission [Unknown]
  - Blood electrolytes abnormal [Recovering/Resolving]
  - Product use in unapproved indication [Unknown]
